FAERS Safety Report 16814645 (Version 1)
Quarter: 2019Q3

REPORT INFORMATION
  Report Type: Report from Study
  Country: ZA (occurrence: ZA)
  Receive Date: 20190917
  Receipt Date: 20190917
  Transmission Date: 20191005
  Serious: Yes (Other)
  Sender: FDA-Public Use
  Company Number: ZA-AUROBINDO-AUR-APL-2019-060073

PATIENT

DRUGS (1)
  1. EFAVIRENZ. [Suspect]
     Active Substance: EFAVIRENZ
     Indication: HIV INFECTION WHO CLINICAL STAGE II
     Dosage: UNK
     Route: 065

REACTIONS (4)
  - Insomnia [Recovering/Resolving]
  - Generalised tonic-clonic seizure [Unknown]
  - HIV-associated neurocognitive disorder [Unknown]
  - Disturbance in attention [Unknown]
